FAERS Safety Report 5505499-5 (Version None)
Quarter: 2007Q4

REPORT INFORMATION
  Report Type: 
  Country: None (occurrence: None)
  Receive Date: 20071102
  Receipt Date: 20071026
  Transmission Date: 20080405
  Serious: Yes (Other)
  Sender: FDA-Public Use
  Company Number: PHBS2007GB00503

PATIENT
  Age: 74 Year
  Sex: Male

DRUGS (2)
  1. VALSARTAN [Suspect]
     Indication: HYPERTENSION
     Dosage: 80 MG, ONCE/SINGLE
  2. FUROSEMIDE [Suspect]
     Indication: HYPERTENSION

REACTIONS (10)
  - BLINDNESS [None]
  - CEREBRAL ISCHAEMIA [None]
  - DRUG INTERACTION [None]
  - HALLUCINATION, VISUAL [None]
  - HYPOPERFUSION [None]
  - MACULAR OEDEMA [None]
  - MOVEMENT DISORDER [None]
  - RETINAL ARTERY OCCLUSION [None]
  - RETINAL ISCHAEMIA [None]
  - VISUAL ACUITY REDUCED [None]
